FAERS Safety Report 9417339 (Version 2)
Quarter: 2013Q4

REPORT INFORMATION
  Report Type: Spontaneous
  Country: US (occurrence: US)
  Receive Date: 20130724
  Receipt Date: 20131022
  Transmission Date: 20140711
  Serious: No
  Sender: FDA-Public Use
  Company Number: US-BRISTOL-MYERS SQUIBB COMPANY-18881045

PATIENT
  Age: 78 Year
  Sex: Female
  Weight: 72.11 kg

DRUGS (2)
  1. ELIQUIS [Suspect]
     Indication: ATRIAL FIBRILLATION
     Route: 048
     Dates: start: 20130411, end: 20130510
  2. XARELTO [Suspect]

REACTIONS (1)
  - Oedema mouth [Not Recovered/Not Resolved]
